FAERS Safety Report 20513314 (Version 1)
Quarter: 2022Q1

REPORT INFORMATION
  Report Type: Spontaneous
  Country: US (occurrence: US)
  Receive Date: 20220224
  Receipt Date: 20220224
  Transmission Date: 20220424
  Serious: No
  Sender: FDA-Public Use
  Company Number: US-AMNEAL PHARMACEUTICALS-2021-AMRX-02298

PATIENT
  Age: 60 Year
  Sex: Male

DRUGS (3)
  1. RYTARY [Suspect]
     Active Substance: CARBIDOPA\LEVODOPA
     Indication: Product used for unknown indication
     Dosage: UNK UNK, EVERY 4HR
     Route: 065
  2. INBRIJA [Suspect]
     Active Substance: LEVODOPA
     Indication: On and off phenomenon
     Dosage: 84 MILLIGRAM, AS NEEDED, NOT TO EXCEED 5 DOSES PER DAY
     Dates: start: 20210604
  3. INBRIJA [Suspect]
     Active Substance: LEVODOPA
     Indication: Parkinson^s disease

REACTIONS (6)
  - Pain [Recovering/Resolving]
  - Therapeutic product effect variable [Unknown]
  - Tremor [Unknown]
  - Dyspepsia [Unknown]
  - Anxiety [Unknown]
  - Food interaction [Unknown]

NARRATIVE: CASE EVENT DATE: 20210601
